FAERS Safety Report 5585802-0 (Version None)
Quarter: 2008Q1

REPORT INFORMATION
  Report Type: 
  Country: None (occurrence: None)
  Receive Date: 20080109
  Receipt Date: 20071001
  Transmission Date: 20080703
  Serious: Yes (Hospitalization)
  Sender: FDA-Public Use
  Company Number: ES-RANBAXY-2007RR-10688

PATIENT

DRUGS (3)
  1. IBUPROFENE RPG 200MG COMPRIME PELLICULE [Suspect]
     Indication: PERIODONTITIS
     Dosage: UNK MG, BID
     Route: 048
     Dates: start: 20060130, end: 20060207
  2. AUGMENTIN '250' [Suspect]
     Indication: PERIODONTITIS
     Dosage: 1500 MG, QD
     Route: 048
     Dates: start: 20060130, end: 20060207
  3. DEXCHLORPHENIRAMINE [Concomitant]

REACTIONS (1)
  - HEPATITIS CHOLESTATIC [None]
